FAERS Safety Report 8834866 (Version 1)
Quarter: 2012Q4

REPORT INFORMATION
  Report Type: Spontaneous
  Country: DE (occurrence: None)
  Receive Date: 20121009
  Receipt Date: 20121009
  Transmission Date: 20130627
  Serious: Yes (Hospitalization, Congenital Anomaly)
  Sender: FDA-Public Use
  Company Number: E2B_00000406

PATIENT
  Sex: Female
  Weight: 3.4 kg

DRUGS (5)
  1. LAMOTRIGINE (UNKNOWN) [Suspect]
     Indication: EPILEPSY
     Dosage: 400 mg (200 mg, 2 in 1 D), Transplacental
     Route: 064
     Dates: start: 20110709, end: 20120321
  2. INFLUENZA VACCINE (IMPFSTOFF GRIPPE) [Concomitant]
  3. INSULIN LISPRO (HUMALOG) [Concomitant]
  4. FOLIC ACID (FOLSAN) [Concomitant]
  5. INSULIN ASPART (NOVORAPID) [Concomitant]

REACTIONS (6)
  - Maternal drugs affecting foetus [None]
  - Gastroschisis [None]
  - Haemangioma [None]
  - Atrial septal defect [None]
  - Caesarean section [None]
  - Premature baby [None]
